FAERS Safety Report 7496142-7 (Version None)
Quarter: 2011Q2

REPORT INFORMATION
  Report Type: 
  Country: None (occurrence: None)
  Receive Date: 20110523
  Receipt Date: 20110509
  Transmission Date: 20111010
  Serious: Yes (Other)
  Sender: FDA-Public Use
  Company Number: PHHY2011US31468

PATIENT
  Sex: Male
  Weight: 92.971 kg

DRUGS (5)
  1. CLOZARIL [Suspect]
     Indication: PSYCHOTIC DISORDER
     Dosage: UNK
     Dates: start: 20101216, end: 20110331
  2. HALDOL [Concomitant]
     Indication: PSYCHOTIC DISORDER
     Dosage: 5 MG, BID
     Route: 048
  3. CLOMIPRAMINE HYDROCHLORIDE [Concomitant]
     Indication: OBSESSIVE-COMPULSIVE DISORDER
     Dosage: 75 MG, BID
     Route: 048
  4. TOPAMAX [Concomitant]
     Indication: DECREASED APPETITE
     Dosage: 100 MG, BID
  5. COGENTIN [Concomitant]
     Indication: EXTRAPYRAMIDAL DISORDER
     Dosage: 1 MG, BID
     Route: 048

REACTIONS (4)
  - LEFT VENTRICULAR DYSFUNCTION [None]
  - DYSPNOEA [None]
  - CARDIOVASCULAR DISORDER [None]
  - PSYCHOTIC DISORDER [None]
